FAERS Safety Report 10744487 (Version 3)
Quarter: 2015Q1

REPORT INFORMATION
  Report Type: Spontaneous
  Country: JP (occurrence: None)
  Receive Date: 20150126
  Receipt Date: 20150219
  Transmission Date: 20150721
  Serious: Yes (Other)
  Sender: FDA-Public Use
  Company Number: JP2015JPN006653

PATIENT

DRUGS (3)
  1. HEPSERA [Suspect]
     Active Substance: ADEFOVIR DIPIVOXIL
     Route: 048
  2. TENOZET [Suspect]
     Active Substance: TENOFOVIR DISOPROXIL FUMARATE
     Route: 048
  3. ZEFIX [Suspect]
     Active Substance: LAMIVUDINE
     Route: 048

REACTIONS (5)
  - Hepatitis B [None]
  - Fanconi syndrome [None]
  - Blood phosphorus decreased [None]
  - Osteomalacia [None]
  - Renal disorder [None]
